FAERS Safety Report 16992426 (Version 1)
Quarter: 2019Q4

REPORT INFORMATION
  Report Type: Spontaneous
  Country: US (occurrence: US)
  Receive Date: 20191104
  Receipt Date: 20191104
  Transmission Date: 20200122
  Serious: No
  Sender: FDA-Public Use
  Company Number: None

PATIENT
  Age: 44 Year
  Sex: Female
  Weight: 81.9 kg

DRUGS (1)
  1. EMGALITY [Suspect]
     Active Substance: GALCANEZUMAB-GNLM
     Indication: MIGRAINE
     Dosage: ?          OTHER FREQUENCY:ONCE A MONTH;?
     Route: 058

REACTIONS (14)
  - Migraine [None]
  - Injection site pain [None]
  - Fatigue [None]
  - Injection site pruritus [None]
  - Urticaria [None]
  - Dyspnoea exertional [None]
  - Chest discomfort [None]
  - Weight increased [None]
  - Constipation [None]
  - Condition aggravated [None]
  - Injection site swelling [None]
  - Injection site induration [None]
  - Headache [None]
  - Hypertension [None]

NARRATIVE: CASE EVENT DATE: 20190905
